FAERS Safety Report 14783101 (Version 4)
Quarter: 2018Q2

REPORT INFORMATION
  Report Type: Report from Study
  Country: US (occurrence: US)
  Receive Date: 20180420
  Receipt Date: 20180625
  Transmission Date: 20180711
  Serious: Yes (Death, Life-Threatening, Other)
  Sender: FDA-Public Use
  Company Number: PHEH2018US014839

PATIENT
  Sex: Male

DRUGS (16)
  1. ASPIR LOW [Concomitant]
     Active Substance: ASPIRIN
     Indication: PRODUCT USED FOR UNKNOWN INDICATION
     Dosage: 81 MG, QD
     Route: 048
  2. CARVEDILOL. [Concomitant]
     Active Substance: CARVEDILOL
     Dosage: 6.25 MG, BID (1 TABLET)
     Route: 048
  3. CARVEDILOL. [Concomitant]
     Active Substance: CARVEDILOL
     Indication: PRODUCT USED FOR UNKNOWN INDICATION
     Dosage: 6.25 MG, UNK
     Route: 048
  4. LASIX [Concomitant]
     Active Substance: FUROSEMIDE
     Indication: OEDEMA PERIPHERAL
     Dosage: 20 MG, UNK
     Route: 048
  5. LASIX [Concomitant]
     Active Substance: FUROSEMIDE
     Indication: BLISTER
     Dosage: 20 MG, QD (1 TAB)
     Route: 048
  6. AMIODARONE [Concomitant]
     Active Substance: AMIODARONE
     Indication: PRODUCT USED FOR UNKNOWN INDICATION
     Dosage: 200 MG, QD
     Route: 048
  7. ENTRESTO [Suspect]
     Active Substance: SACUBITRIL\VALSARTAN
     Indication: PRODUCT USED FOR UNKNOWN INDICATION
     Dosage: UNK
     Route: 065
  8. ATORVASTATIN [Suspect]
     Active Substance: ATORVASTATIN
     Indication: PRODUCT USED FOR UNKNOWN INDICATION
     Route: 065
  9. AMIODARONE [Concomitant]
     Active Substance: AMIODARONE
     Dosage: 100 MG, QD
     Route: 048
  10. AMIODARONE [Concomitant]
     Active Substance: AMIODARONE
     Dosage: 0.5 UNK, QD
     Route: 048
  11. LIPITOR [Concomitant]
     Active Substance: ATORVASTATIN CALCIUM
     Indication: PRODUCT USED FOR UNKNOWN INDICATION
     Dosage: 40 MG, QD
     Route: 048
  12. PANTOPRAZOLE [Concomitant]
     Active Substance: PANTOPRAZOLE
     Indication: PRODUCT USED FOR UNKNOWN INDICATION
     Dosage: 40 MG, QD
     Route: 048
  13. VITAMIN B12 [Concomitant]
     Active Substance: CYANOCOBALAMIN
     Dosage: 500 MCG, QD (1TAB)
     Route: 048
  14. HYDROCHLOROTHIAZIDE. [Concomitant]
     Active Substance: HYDROCHLOROTHIAZIDE
     Indication: PRODUCT USED FOR UNKNOWN INDICATION
     Dosage: 50 MG, QD
     Route: 048
  15. VITAMIN B12 [Concomitant]
     Active Substance: CYANOCOBALAMIN
     Indication: PRODUCT USED FOR UNKNOWN INDICATION
     Dosage: 500 MCG, UNK
     Route: 048
  16. WARFARIN [Concomitant]
     Active Substance: WARFARIN
     Indication: PRODUCT USED FOR UNKNOWN INDICATION
     Dosage: 5 MG, UNK
     Route: 048

REACTIONS (28)
  - Cardiomyopathy [Unknown]
  - Oedema peripheral [Unknown]
  - Glaucoma [Unknown]
  - Weight increased [Unknown]
  - Orthopnoea [Unknown]
  - Cough [Unknown]
  - Wheezing [Unknown]
  - Pain in extremity [Unknown]
  - Wound [Unknown]
  - Arterial thrombosis [Unknown]
  - Embolism arterial [Unknown]
  - Chest pain [Unknown]
  - Back pain [Unknown]
  - Chronic left ventricular failure [Unknown]
  - Nasal congestion [Unknown]
  - Sinus node dysfunction [Unknown]
  - Headache [Unknown]
  - Dyspnoea [Unknown]
  - Balance disorder [Unknown]
  - Asthenia [Unknown]
  - Hyperlipidaemia [Unknown]
  - Exercise tolerance decreased [Unknown]
  - Death [Fatal]
  - Feeling abnormal [Unknown]
  - Intermittent claudication [Unknown]
  - Dyspnoea paroxysmal nocturnal [Unknown]
  - Arthralgia [Unknown]
  - Dizziness [Unknown]
